FAERS Safety Report 6962277-8 (Version None)
Quarter: 2010Q3

REPORT INFORMATION
  Report Type: 
  Country: None (occurrence: None)
  Receive Date: 20100901
  Receipt Date: 20100901
  Transmission Date: 20110219
  Serious: Yes (Life-Threatening)
  Sender: FDA-Public Use
  Company Number: None

PATIENT
  Age: 57 Year
  Sex: Female
  Weight: 87.9978 kg

DRUGS (2)
  1. ARMOUR THYROID 60MG FORREST LABS [Suspect]
     Indication: HYPOTHYROIDISM
     Dosage: 60MG TWICE A DAY PO
     Route: 048
     Dates: start: 20100715, end: 20100726
  2. ARMOUR THYROID 60MG FORREST LABS [Suspect]
     Indication: HYPOTHYROIDISM
     Dosage: 60MG TWICE A DAY PO
     Route: 048
     Dates: start: 20090801, end: 20100823

REACTIONS (6)
  - BODY TEMPERATURE DECREASED [None]
  - FEELING ABNORMAL [None]
  - PRESYNCOPE [None]
  - PSORIASIS [None]
  - STRESS [None]
  - THYROTOXIC CRISIS [None]
